FAERS Safety Report 15169061 (Version 1)
Quarter: 2018Q3

REPORT INFORMATION
  Report Type: Spontaneous
  Country: US (occurrence: US)
  Receive Date: 20180720
  Receipt Date: 20180720
  Transmission Date: 20181010
  Serious: Yes (Hospitalization, Other)
  Sender: FDA-Public Use
  Company Number: US-ROCHE-2129354

PATIENT
  Sex: Male
  Weight: 61.8 kg

DRUGS (4)
  1. HEMLIBRA [Suspect]
     Active Substance: EMICIZUMAB-KXWH
     Route: 058
     Dates: start: 20180309
  2. HEMLIBRA [Suspect]
     Active Substance: EMICIZUMAB-KXWH
     Indication: FACTOR VIII DEFICIENCY
     Dosage: 3 MG/KG, LOADING DOSE
     Route: 058
  3. HEMLIBRA [Suspect]
     Active Substance: EMICIZUMAB-KXWH
     Route: 058
  4. HEMLIBRA [Suspect]
     Active Substance: EMICIZUMAB-KXWH
     Dosage: WEEKLY
     Route: 058

REACTIONS (6)
  - Myalgia [Unknown]
  - Haemorrhage [Unknown]
  - Muscle spasms [Unknown]
  - Gait inability [Unknown]
  - Arthralgia [Recovered/Resolved]
  - Drug effect decreased [Unknown]
